FAERS Safety Report 21898720 (Version 1)
Quarter: 2023Q1

REPORT INFORMATION
  Report Type: Spontaneous
  Country: US (occurrence: None)
  Receive Date: 20230122
  Receipt Date: 20230122
  Transmission Date: 20230418
  Serious: Yes (Other)
  Sender: FDA-Public Use
  Company Number: None

PATIENT
  Age: 35 Year
  Sex: Female
  Weight: 63 kg

DRUGS (1)
  1. JENCYCLA [Suspect]
     Active Substance: NORETHINDRONE
     Indication: Contraception
     Dosage: OTHER QUANTITY : 28 TABLET(S);?FREQUENCY : AT BEDTIME;?
     Route: 048
     Dates: start: 20221101, end: 20230120

REACTIONS (3)
  - Asthenia [None]
  - Feeling of despair [None]
  - Product quality issue [None]

NARRATIVE: CASE EVENT DATE: 20230119
